FAERS Safety Report 7074355-6 (Version None)
Quarter: 2010Q4

REPORT INFORMATION
  Report Type: 
  Country: None (occurrence: None)
  Receive Date: 20101029
  Receipt Date: 20101014
  Transmission Date: 20110411
  Serious: Yes (Hospitalization)
  Sender: FDA-Public Use
  Company Number: BR-MEDIMMUNE-MEDI-0011523

PATIENT
  Sex: Female
  Weight: 3.7 kg

DRUGS (4)
  1. SYNAGIS [Suspect]
     Dates: start: 20100731, end: 20100828
  2. FENOTEROL HYDROBROMIDE [Concomitant]
     Route: 055
  3. IPRATROPIUM BROMIDE [Concomitant]
     Dates: start: 20100524
  4. RANTIDINE [Concomitant]

REACTIONS (6)
  - BRONCHIOLITIS [None]
  - DYSPNOEA [None]
  - FATIGUE [None]
  - FEEDING DISORDER NEONATAL [None]
  - NASOPHARYNGITIS [None]
  - PNEUMONIA [None]
